FAERS Safety Report 6858480-8 (Version None)
Quarter: 2010Q3

REPORT INFORMATION
  Report Type: 
  Country: None (occurrence: None)
  Receive Date: 20100719
  Receipt Date: 20100707
  Transmission Date: 20110219
  Serious: Yes (Hospitalization)
  Sender: FDA-Public Use
  Company Number: CO-GENENTECH-304084

PATIENT
  Sex: Male

DRUGS (1)
  1. MABTHERA [Suspect]
     Indication: NEPHROTIC SYNDROME
     Dosage: 400 MG, UNK
     Route: 042
     Dates: start: 20100223

REACTIONS (3)
  - DIZZINESS [None]
  - HEADACHE [None]
  - PYREXIA [None]
